FAERS Safety Report 12979224 (Version 1)
Quarter: 2016Q4

REPORT INFORMATION
  Report Type: Spontaneous
  Country: RO (occurrence: RO)
  Receive Date: 20161128
  Receipt Date: 20161128
  Transmission Date: 20170207
  Serious: Yes (Death, Hospitalization)
  Sender: FDA-Public Use
  Company Number: RO-JNJFOC-20161125390

PATIENT
  Age: 35 Year
  Sex: Male

DRUGS (7)
  1. ROMPARKIN [Concomitant]
     Indication: PARKINSONISM
     Route: 065
     Dates: start: 20161017, end: 20161031
  2. TRITTICO [Concomitant]
     Active Substance: TRAZODONE HYDROCHLORIDE
     Indication: HYPNOTHERAPY
     Route: 065
     Dates: start: 20161017, end: 20161031
  3. RIVOTRIL [Concomitant]
     Active Substance: CLONAZEPAM
     Indication: HYPNOTHERAPY
     Route: 065
     Dates: start: 20161017, end: 20161031
  4. ALPRAZOLAM. [Concomitant]
     Active Substance: ALPRAZOLAM
     Indication: ANXIOLYTIC THERAPY
     Route: 065
     Dates: start: 20161017, end: 20161031
  5. INVEGA [Suspect]
     Active Substance: PALIPERIDONE
     Indication: SCHIZOPHRENIA
     Route: 048
     Dates: start: 20161020, end: 20161031
  6. METOPROLOL. [Concomitant]
     Active Substance: METOPROLOL
     Indication: HYPERTENSION
     Route: 059
     Dates: start: 20161025, end: 20161031
  7. ANAFRANIL [Concomitant]
     Active Substance: CLOMIPRAMINE HYDROCHLORIDE
     Indication: DEPRESSION
     Route: 048
     Dates: start: 20161017, end: 20161031

REACTIONS (3)
  - Pancreatitis haemorrhagic [Unknown]
  - Cardio-respiratory arrest [Fatal]
  - Blood bilirubin increased [Unknown]

NARRATIVE: CASE EVENT DATE: 20161019
